FAERS Safety Report 5911584-6 (Version None)
Quarter: 2008Q4

REPORT INFORMATION
  Report Type: 
  Country: None (occurrence: None)
  Receive Date: 20081003
  Receipt Date: 20080917
  Transmission Date: 20090506
  Serious: Yes (Other)
  Sender: FDA-Public Use
  Company Number: JPI-P-004795

PATIENT
  Age: 34 Year
  Sex: Female
  Weight: 55 kg

DRUGS (23)
  1. FLUVOXAMINE MALEATE [Suspect]
     Indication: SOCIAL PHOBIA
     Dosage: SEE IMAGE
     Route: 048
     Dates: start: 20061106, end: 20061119
  2. FLUVOXAMINE MALEATE [Suspect]
     Indication: SOCIAL PHOBIA
     Dosage: SEE IMAGE
     Route: 048
     Dates: start: 20061120, end: 20061204
  3. FLUVOXAMINE MALEATE [Suspect]
     Indication: SOCIAL PHOBIA
     Dosage: SEE IMAGE
     Route: 048
     Dates: start: 20061205, end: 20070110
  4. FLUVOXAMINE MALEATE [Suspect]
     Indication: SOCIAL PHOBIA
     Dosage: SEE IMAGE
     Route: 048
     Dates: start: 20070111, end: 20070311
  5. FLUVOXAMINE MALEATE [Suspect]
     Indication: SOCIAL PHOBIA
     Dosage: SEE IMAGE
     Route: 048
     Dates: start: 20070312, end: 20070402
  6. FLUVOXAMINE MALEATE [Suspect]
     Indication: SOCIAL PHOBIA
     Dosage: SEE IMAGE
     Route: 048
     Dates: start: 20070403, end: 20070416
  7. FLUVOXAMINE MALEATE [Suspect]
     Indication: SOCIAL PHOBIA
     Dosage: SEE IMAGE
     Route: 048
     Dates: start: 20070417, end: 20071015
  8. FLUVOXAMINE MALEATE [Suspect]
     Indication: SOCIAL PHOBIA
     Dosage: SEE IMAGE
     Route: 048
     Dates: start: 20071016
  9. MILNACIPRAN HYDROCHLORIDE [Suspect]
     Indication: DEPRESSION
     Dosage: SEE IMAGE
     Route: 048
     Dates: end: 20061119
  10. MILNACIPRAN HYDROCHLORIDE [Suspect]
     Indication: DEPRESSION
     Dosage: SEE IMAGE
     Route: 048
     Dates: start: 20061120, end: 20061224
  11. DIAZEPAM [Concomitant]
  12. EPINASTINE HYDROCHLORIDE (EPINASTINE HYDROCHLORIDE) [Concomitant]
  13. ETIZOLAM (ETIZOLAM) [Concomitant]
  14. SENNA LEAF (SENNA ALEXANDRINA LEAF) [Concomitant]
  15. ESTAZOLAM [Concomitant]
  16. CLONAZEPAM [Concomitant]
  17. ATENOLOL [Concomitant]
  18. MAGNESIUM OXIDE (MAGNESIUM OXIDE) [Concomitant]
  19. BIPERIDEN HYDROCHLORIDE TAB [Concomitant]
  20. METOCLOPRAMIDE [Concomitant]
  21. QUETIAPINE FUMARATE (QUETIAPINE FUMAATE) [Concomitant]
  22. LEVOMEPROMAZINE MALEATE (LEVOMEPROMAZINE MALEATE) [Concomitant]
  23. VEGETAMIN-B (VEGETAMIN A) [Concomitant]

REACTIONS (10)
  - BLEPHAROSPASM [None]
  - BLOOD CREATINE PHOSPHOKINASE INCREASED [None]
  - DIZZINESS [None]
  - HEPATIC STEATOSIS [None]
  - NAUSEA [None]
  - PALPITATIONS [None]
  - PYREXIA [None]
  - TINNITUS [None]
  - TREMOR [None]
  - WEIGHT INCREASED [None]
